FAERS Safety Report 10413266 (Version 1)
Quarter: 2014Q3

REPORT INFORMATION
  Report Type: Report from Study
  Country: US (occurrence: US)
  Receive Date: 20140827
  Receipt Date: 20140827
  Transmission Date: 20150326
  Serious: Yes (Hospitalization)
  Sender: FDA-Public Use
  Company Number: US-MERCK-1408USA014504

PATIENT
  Age: 73 Year
  Sex: Female

DRUGS (3)
  1. VORINOSTAT [Suspect]
     Active Substance: VORINOSTAT
     Indication: ACUTE MYELOID LEUKAEMIA
     Dosage: 500 MG, TID
     Dates: start: 20140726
  2. VORINOSTAT [Suspect]
     Active Substance: VORINOSTAT
     Dosage: 300 MG, QD
     Dates: start: 20140618, end: 20140804
  3. TEMODAR [Suspect]
     Active Substance: TEMOZOLOMIDE
     Indication: ACUTE MYELOID LEUKAEMIA
     Dosage: 360 MG, QD
     Route: 048
     Dates: start: 20140618, end: 20140804

REACTIONS (1)
  - Febrile neutropenia [Recovered/Resolved]

NARRATIVE: CASE EVENT DATE: 20140808
